FAERS Safety Report 9651088 (Version 2)
Quarter: 2013Q4

REPORT INFORMATION
  Report Type: Spontaneous
  Country: US (occurrence: US)
  Receive Date: 20131029
  Receipt Date: 20131114
  Transmission Date: 20140711
  Serious: No
  Sender: FDA-Public Use
  Company Number: US-PFIZER INC-2013305875

PATIENT
  Age: 77 Year
  Sex: Male

DRUGS (4)
  1. SUTENT [Suspect]
     Indication: RENAL CANCER
     Dosage: 50 MG, CYCLIC
     Route: 048
     Dates: start: 20130401
  2. FLOMAX ^BOEHRINGER INGELHEIM^ [Concomitant]
     Dosage: UNK
  3. FUROSEMIDE [Concomitant]
     Dosage: UNK
  4. POTASSIUM [Concomitant]
     Dosage: UNK

REACTIONS (1)
  - Joint swelling [Unknown]
